FAERS Safety Report 8520495-1 (Version None)
Quarter: 2012Q3

REPORT INFORMATION
  Report Type: 
  Country: None (occurrence: None)
  Receive Date: 20120719
  Receipt Date: 20120712
  Transmission Date: 20120928
  Serious: Yes (Hospitalization)
  Sender: FDA-Public Use
  Company Number: US-BAYER-2011-041794

PATIENT
  Age: 45 Year
  Sex: Female
  Weight: 99 kg

DRUGS (3)
  1. YAZ [Suspect]
     Dosage: UNK
     Dates: start: 20050330, end: 20100710
  2. TRIAMTERENE [Concomitant]
  3. SYNTHROID [Concomitant]

REACTIONS (13)
  - PAIN [None]
  - CHOLELITHIASIS [None]
  - SCAR [None]
  - GALLBLADDER DISORDER [None]
  - INJURY [None]
  - CONSTIPATION [None]
  - DEPRESSION [None]
  - ABDOMINAL DISTENSION [None]
  - FLATULENCE [None]
  - DYSPEPSIA [None]
  - DIARRHOEA [None]
  - EMOTIONAL DISTRESS [None]
  - ANXIETY [None]
